FAERS Safety Report 17145963 (Version 1)
Quarter: 2019Q4

REPORT INFORMATION
  Report Type: Spontaneous
  Country: GB (occurrence: GB)
  Receive Date: 20191212
  Receipt Date: 20191212
  Transmission Date: 20200122
  Serious: Yes (Hospitalization)
  Sender: FDA-Public Use
  Company Number: GB-MYLANLABS-2019M1088389

PATIENT
  Sex: Male
  Weight: 80 kg

DRUGS (14)
  1. PROPRANOLOL [Concomitant]
     Active Substance: PROPRANOLOL HYDROCHLORIDE
     Indication: AKATHISIA
     Dosage: 10 MILLIGRAM, QD
     Route: 048
     Dates: start: 201811
  2. CLOZARIL [Suspect]
     Active Substance: CLOZAPINE
     Dosage: 400 MILLIGRAM, QD
     Dates: start: 20190923
  3. SERTRALINE [Concomitant]
     Active Substance: SERTRALINE HYDROCHLORIDE
     Indication: ANXIETY
  4. DEPAKOTE ER [Concomitant]
     Active Substance: DIVALPROEX SODIUM
     Dosage: 500 MILLIGRAM, BID
     Route: 048
     Dates: start: 2019
  5. DEPAKOTE ER [Concomitant]
     Active Substance: DIVALPROEX SODIUM
     Dosage: 750 MILLIGRAM, PM
     Route: 048
     Dates: start: 201909
  6. CO-AMOXICLAVE [Concomitant]
     Active Substance: AMOXICILLIN\CLAVULANATE POTASSIUM
     Dosage: 625 MILLIGRAM
     Route: 048
     Dates: start: 20190911
  7. HYOSCINE HYDROBROMIDE [Concomitant]
     Active Substance: SCOPOLAMINE HYDROBROMIDE
     Indication: SALIVARY HYPERSECRETION
     Dosage: 300 MICROGRAM, BID
     Route: 048
     Dates: start: 201904
  8. VALPROIC ACID. [Concomitant]
     Active Substance: VALPROIC ACID
     Dosage: 1250 MILLIGRAM, 500 MG AM AND 750 MG PM
     Route: 048
  9. LEVOTHYROXINE. [Concomitant]
     Active Substance: LEVOTHYROXINE
     Indication: HYPOTHYROIDISM
     Dosage: 25 MICROGRAM, QD
     Route: 048
  10. CLOZARIL [Suspect]
     Active Substance: CLOZAPINE
     Indication: SCHIZOPHRENIA
     Dosage: 200 MILLIGRAM, BID
     Route: 048
     Dates: start: 20190321
  11. CLOZARIL [Suspect]
     Active Substance: CLOZAPINE
     Dosage: 300 MILLIGRAM, QD
  12. DEPAKOTE ER [Concomitant]
     Active Substance: DIVALPROEX SODIUM
     Dosage: 500 MILLIGRAM, AM
     Route: 048
     Dates: start: 201909
  13. DEPAKOTE ER [Concomitant]
     Active Substance: DIVALPROEX SODIUM
     Indication: MOOD SWINGS
     Dosage: 500 MILLIGRAM, BID
     Dates: start: 2014
  14. SERTRALINE [Concomitant]
     Active Substance: SERTRALINE HYDROCHLORIDE
     Indication: DEPRESSIVE SYMPTOM
     Dosage: 50 MILLIGRAM, QD
     Route: 048
     Dates: start: 201809

REACTIONS (4)
  - Antipsychotic drug level below therapeutic [Recovered/Resolved]
  - Antipsychotic drug level increased [Recovering/Resolving]
  - Seizure [Recovered/Resolved]
  - Cardiac arrest [Recovered/Resolved]

NARRATIVE: CASE EVENT DATE: 2019
